FAERS Safety Report 25571043 (Version 1)
Quarter: 2025Q3

REPORT INFORMATION
  Report Type: Spontaneous
  Country: EU (occurrence: EU)
  Receive Date: 20250717
  Receipt Date: 20250717
  Transmission Date: 20251020
  Serious: Yes (Death)
  Sender: AUROBINDO
  Company Number: EU-PFIZER INC-2008AC01837

PATIENT
  Age: 12 Year
  Sex: Female
  Weight: 57 kg

DRUGS (18)
  1. MEROPENEM [Interacting]
     Active Substance: MEROPENEM
     Indication: Infection
     Dosage: 60 MILLIGRAM/KILOGRAM, ONCE A DAY (60 MG/KG, 1X/DAY)
     Route: 042
  2. VALPROIC ACID [Interacting]
     Active Substance: VALPROIC ACID
     Indication: Myoclonic epilepsy
     Dosage: 17.5 MILLIGRAM/KILOGRAM, ONCE A DAY
     Route: 048
  3. VALPROIC ACID [Interacting]
     Active Substance: VALPROIC ACID
     Dosage: 70 MILLIGRAM/KILOGRAM, ONCE A DAY
     Route: 050
  4. VALPROIC ACID [Interacting]
     Active Substance: VALPROIC ACID
     Indication: Myoclonic epilepsy
     Dosage: 130 MILLIGRAM/KILOGRAM, ONCE A DAY
     Route: 042
  5. VALPROIC ACID [Interacting]
     Active Substance: VALPROIC ACID
     Dosage: 100 MG/KG, 1X/DAY (DECREASED)
     Route: 042
  6. VALPROIC ACID [Interacting]
     Active Substance: VALPROIC ACID
     Dosage: 70 MG/KG, 1X/DAY (NASOGASTRIC TUBE)
  7. AMIKACIN [Concomitant]
     Active Substance: AMIKACIN
     Indication: Product used for unknown indication
     Route: 065
  8. CHLORAL HYDRATE [Concomitant]
     Active Substance: CHLORAL HYDRATE
     Indication: Product used for unknown indication
     Route: 065
  9. CLONAZEPAM [Concomitant]
     Active Substance: CLONAZEPAM
     Indication: Product used for unknown indication
     Route: 065
  10. OXITRIPTAN [Concomitant]
     Active Substance: OXITRIPTAN
     Indication: Product used for unknown indication
     Route: 065
  11. IMMUNE GLOBULIN NOS [Concomitant]
     Active Substance: IMMUNE GLOBULIN NOS
     Indication: Product used for unknown indication
     Route: 065
  12. MIDAZOLAM [Concomitant]
     Active Substance: MIDAZOLAM
     Indication: Product used for unknown indication
     Route: 042
  13. PHENYTOIN [Concomitant]
     Active Substance: PHENYTOIN
     Indication: Product used for unknown indication
     Route: 065
  14. PIRACETAM [Concomitant]
     Active Substance: PIRACETAM
     Indication: Product used for unknown indication
     Route: 065
  15. PROPOFOL [Concomitant]
     Active Substance: PROPOFOL
     Indication: Analgesic therapy
     Route: 065
  16. REMIFENTANIL [Concomitant]
     Active Substance: REMIFENTANIL
     Indication: Analgesic therapy
     Route: 065
  17. COSYNTROPIN [Concomitant]
     Active Substance: COSYNTROPIN
     Indication: Product used for unknown indication
     Route: 065
  18. VANCOMYCIN [Concomitant]
     Active Substance: VANCOMYCIN
     Indication: Product used for unknown indication
     Route: 065

REACTIONS (2)
  - Anticonvulsant drug level decreased [Fatal]
  - Drug interaction [Fatal]
